FAERS Safety Report 10422640 (Version 3)
Quarter: 2015Q1

REPORT INFORMATION
  Report Type: Report from Study
  Country: CA (occurrence: CA)
  Receive Date: 20140902
  Receipt Date: 20150210
  Transmission Date: 20150720
  Serious: Yes (Other)
  Sender: FDA-Public Use
  Company Number: CA-AMGEN-CANSP2014063591

PATIENT
  Age: 75 Year
  Sex: Female

DRUGS (4)
  1. PROZAC [Concomitant]
     Active Substance: FLUOXETINE HYDROCHLORIDE
     Dosage: UNK
  2. RIVATRIL [Concomitant]
     Active Substance: CLONAZEPAM
     Dosage: UNK
  3. SYNTHROID [Concomitant]
     Active Substance: LEVOTHYROXINE SODIUM
     Dosage: UNK
  4. PROLIA [Suspect]
     Active Substance: DENOSUMAB
     Indication: OSTEOPOROSIS POSTMENOPAUSAL
     Dosage: 60 MG/ML, UNK
     Route: 065
     Dates: start: 20140610

REACTIONS (2)
  - Arthropathy [Not Recovered/Not Resolved]
  - Skin cancer [Not Recovered/Not Resolved]
